FAERS Safety Report 13111201 (Version 1)
Quarter: 2017Q1

REPORT INFORMATION
  Report Type: Spontaneous
  Country: FR (occurrence: FR)
  Receive Date: 20170112
  Receipt Date: 20170112
  Transmission Date: 20170428
  Serious: Yes (Hospitalization)
  Sender: FDA-Public Use
  Company Number: FR-MYLANLABS-2017M1001245

PATIENT

DRUGS (14)
  1. DOXORUBICINE (NOS) [Suspect]
     Active Substance: DOXORUBICIN
     Indication: LUNG NEOPLASM MALIGNANT
     Dosage: 71 MG, UNK
     Route: 042
     Dates: start: 20161206, end: 20161206
  2. ESOMEPRAZOLE (NOS) [Concomitant]
     Indication: PRODUCT USED FOR UNKNOWN INDICATION
     Dosage: 40 MG, BID
  3. ENDOXAN                            /00021101/ [Suspect]
     Active Substance: CYCLOPHOSPHAMIDE
     Indication: LUNG NEOPLASM MALIGNANT
     Dosage: 1580 MG, UNK
     Route: 042
     Dates: start: 20161206, end: 20161206
  4. ZOPHREN                            /00955301/ [Suspect]
     Active Substance: ONDANSETRON
     Indication: LUNG NEOPLASM MALIGNANT
     Dosage: 8 MG, UNK
     Route: 048
     Dates: start: 20161206, end: 20161206
  5. INNOVAIR 100/6 ?G/DOSE [Concomitant]
     Indication: PRODUCT USED FOR UNKNOWN INDICATION
     Dosage: 1 DF, BID
  6. PREDNISOLONE. [Suspect]
     Active Substance: PREDNISOLONE
     Indication: PRODUCT USED FOR UNKNOWN INDICATION
     Dosage: 80 MG, UNK
     Route: 048
     Dates: start: 20161206, end: 20161206
  7. GAVISCON                           /00237601/ [Concomitant]
     Active Substance: ALUMINUM HYDROXIDE\MAGNESIUM CARBONATE
     Indication: PRODUCT USED FOR UNKNOWN INDICATION
     Dosage: 1 DF, TID
  8. KALEORID LP 1000 [Concomitant]
     Indication: PRODUCT USED FOR UNKNOWN INDICATION
     Dosage: 2 DF, QD
  9. VINCRISTINE HOSPIRA [Suspect]
     Active Substance: VINCRISTINE
     Indication: LUNG NEOPLASM MALIGNANT
     Dosage: 1.6 MG, UNK
     Route: 042
     Dates: start: 20161206, end: 20161206
  10. ALPRAZOLAM  (NOS) [Concomitant]
     Indication: PRODUCT USED FOR UNKNOWN INDICATION
     Dosage: 1 DF, QD
  11. LAMALINE [Suspect]
     Active Substance: ACETAMINOPHEN\CAFFEINE\OPIUM
     Indication: PAIN
     Dosage: UNK, TID
     Route: 048
     Dates: end: 20161215
  12. SOLUPRED                           /00016201/ [Suspect]
     Active Substance: PREDNISOLONE
     Indication: PRODUCT USED FOR UNKNOWN INDICATION
     Dosage: UNK
     Route: 048
     Dates: start: 201612, end: 201612
  13. OLMESARTAN MEDOXOMIL (NOS) [Suspect]
     Active Substance: OLMESARTAN MEDOXOMIL
     Indication: HYPERTENSION
     Dosage: 40 MG, UNK
     Route: 048
     Dates: end: 20161215
  14. RANITIDINE (NOS) [Concomitant]
     Indication: PRODUCT USED FOR UNKNOWN INDICATION
     Dosage: 1 DF, QD

REACTIONS (2)
  - Pancytopenia [Recovering/Resolving]
  - Extremity necrosis [Recovered/Resolved]

NARRATIVE: CASE EVENT DATE: 20161213
